FAERS Safety Report 9128287 (Version 1)
Quarter: 2013Q1

REPORT INFORMATION
  Report Type: Spontaneous
  Country: US (occurrence: US)
  Receive Date: 20130228
  Receipt Date: 20130228
  Transmission Date: 20140127
  Serious: No
  Sender: FDA-Public Use
  Company Number: US-ABBOTT-13P-163-1033321-00

PATIENT
  Sex: Male
  Weight: 108.96 kg

DRUGS (5)
  1. ANDROGEL [Suspect]
     Indication: BLOOD TESTOSTERONE DECREASED
     Dates: start: 201210
  2. CRESTOR [Concomitant]
     Indication: BLOOD CHOLESTEROL INCREASED
  3. AMLODIPINE [Concomitant]
     Indication: HYPERTENSION
  4. LEXAPRO [Concomitant]
     Indication: DEPRESSION
  5. MULTIVITAMIN [Concomitant]
     Indication: VITAMIN SUPPLEMENTATION

REACTIONS (2)
  - Blood testosterone decreased [Not Recovered/Not Resolved]
  - Asthenia [Not Recovered/Not Resolved]
